FAERS Safety Report 4504681-3 (Version None)
Quarter: 2004Q3

REPORT INFORMATION
  Report Type: 
  Country: None (occurrence: None)
  Receive Date: 20040927
  Receipt Date: 20040719
  Transmission Date: 20050211
  Serious: No
  Sender: FDA-Public Use
  Company Number: USA040772983

PATIENT
  Age: 40 Year
  Sex: Male
  Weight: 91 kg

DRUGS (4)
  1. STRATTERA [Suspect]
     Indication: ATTENTION DEFICIT/HYPERACTIVITY DISORDER
     Dosage: 40 MG
  2. IMIPRAM TAB [Concomitant]
  3. CLONAZEPAM [Concomitant]
  4. LUVOX [Concomitant]

REACTIONS (3)
  - ANXIETY [None]
  - OBSESSIVE THOUGHTS [None]
  - THINKING ABNORMAL [None]
